FAERS Safety Report 10121172 (Version 2)
Quarter: 2014Q2

REPORT INFORMATION
  Report Type: Spontaneous
  Country: CA (occurrence: CA)
  Receive Date: 20140425
  Receipt Date: 20140425
  Transmission Date: 20141212
  Serious: Yes (Hospitalization, Other)
  Sender: FDA-Public Use
  Company Number: CA-BAXTER-2014BAX016270

PATIENT
  Age: 44 Year
  Sex: Male

DRUGS (4)
  1. DIANEAL PD4 SOLUTION WITH 2.5% DEXTROSE AND 2.5 MEQ/L CALCIUM [Suspect]
     Indication: RENAL FAILURE
     Route: 033
     Dates: start: 201304, end: 201403
  2. DIANEAL PD4 SOLUTION WITH 2.5% DEXTROSE AND 2.5 MEQ/L CALCIUM [Suspect]
     Route: 033
  3. EXTRANEAL [Suspect]
     Indication: RENAL FAILURE
     Route: 033
     Dates: start: 201304, end: 201403
  4. EXTRANEAL [Suspect]
     Route: 033

REACTIONS (4)
  - Gangrene [Recovering/Resolving]
  - Peritoneal dialysis complication [Unknown]
  - Impaired healing [Unknown]
  - Skin ulcer [Recovering/Resolving]
